FAERS Safety Report 6829260-4 (Version None)
Quarter: 2010Q3

REPORT INFORMATION
  Report Type: 
  Country: None (occurrence: None)
  Receive Date: 20100709
  Receipt Date: 20070307
  Transmission Date: 20110219
  Serious: No
  Sender: FDA-Public Use
  Company Number: US-PFIZER INC-2007019544

PATIENT
  Sex: Female
  Weight: 61.23 kg

DRUGS (5)
  1. CHANTIX [Suspect]
     Indication: SMOKING CESSATION THERAPY
     Dates: start: 20070212, end: 20070303
  2. CELEXA [Concomitant]
     Indication: DEPRESSION
  3. KLONOPIN [Concomitant]
     Indication: ANXIETY
  4. DOXEPIN HCL [Concomitant]
     Indication: URTICARIA
  5. NICOTINE [Concomitant]

REACTIONS (5)
  - CONSTIPATION [None]
  - DYSPEPSIA [None]
  - FEELING ABNORMAL [None]
  - FLATULENCE [None]
  - NAUSEA [None]
